FAERS Safety Report 6024865-5 (Version None)
Quarter: 2008Q4

REPORT INFORMATION
  Report Type: 
  Country: None (occurrence: None)
  Receive Date: 20081231
  Receipt Date: 20081222
  Transmission Date: 20090506
  Serious: Yes (Death, Other)
  Sender: FDA-Public Use
  Company Number: US-CELGENEUS-163-21880-08090580

PATIENT
  Sex: Male

DRUGS (2)
  1. REVLIMID [Suspect]
     Indication: MULTIPLE MYELOMA
     Route: 048
     Dates: start: 20080807, end: 20080801
  2. REVLIMID [Suspect]
     Route: 048
     Dates: start: 20080904, end: 20080901

REACTIONS (4)
  - MULTIPLE MYELOMA [None]
  - RENAL IMPAIRMENT [None]
  - SUBARACHNOID HAEMORRHAGE [None]
  - TUMOUR LYSIS SYNDROME [None]
